FAERS Safety Report 9656808 (Version 2)
Quarter: 2013Q4

REPORT INFORMATION
  Report Type: Spontaneous
  Country: FR (occurrence: FR)
  Receive Date: 20131030
  Receipt Date: 20131126
  Transmission Date: 20140711
  Serious: Yes (Hospitalization)
  Sender: FDA-Public Use
  Company Number: FR-TEVA-440129ISR

PATIENT
  Age: 70 Year
  Sex: Male

DRUGS (1)
  1. COPAXONE [Suspect]
     Dates: start: 20130110

REACTIONS (1)
  - Inguinal hernia [Recovered/Resolved]
